FAERS Safety Report 9690870 (Version 2)
Quarter: 2013Q4

REPORT INFORMATION
  Report Type: Spontaneous
  Country: JP (occurrence: JP)
  Receive Date: 20131115
  Receipt Date: 20131115
  Transmission Date: 20140711
  Serious: Yes (Other)
  Sender: FDA-Public Use
  Company Number: JP-PFIZER INC-2013236995

PATIENT
  Age: 76 Year
  Sex: Male

DRUGS (7)
  1. VFEND [Suspect]
     Indication: KERATITIS FUNGAL
     Dosage: 690 MG/DAY
     Route: 041
     Dates: start: 20130510, end: 20130510
  2. VFEND [Suspect]
     Dosage: 460 MG/DAY
     Route: 041
     Dates: start: 20130511, end: 20130514
  3. VFEND [Suspect]
     Dosage: 400 MG/DAY
     Route: 041
     Dates: start: 20130515, end: 20130523
  4. VFEND [Suspect]
     Dosage: 320 MG/DAY
     Route: 041
     Dates: start: 20130524, end: 20130603
  5. VFEND [Suspect]
     Dosage: 220 MG/DAY
     Route: 041
     Dates: start: 20130604, end: 20130606
  6. CELOOP [Concomitant]
     Indication: GASTRITIS PROPHYLAXIS
     Route: 048
  7. MYSLEE [Concomitant]
     Dosage: 2.5 MG/DAY
     Route: 048
     Dates: start: 20130510, end: 20130512

REACTIONS (6)
  - Off label use [Unknown]
  - Drug level increased [Recovered/Resolved]
  - Delirium [Recovered/Resolved]
  - Hepatic function abnormal [Recovered/Resolved]
  - Insomnia [Recovered/Resolved]
  - Headache [Recovering/Resolving]
